FAERS Safety Report 18216653 (Version 1)
Quarter: 2020Q3

REPORT INFORMATION
  Report Type: Spontaneous
  Country: IN (occurrence: IN)
  Receive Date: 20200901
  Receipt Date: 20200901
  Transmission Date: 20201103
  Serious: Yes (Other)
  Sender: FDA-Public Use
  Company Number: IN-RECKITT BENCKISER HEALTHCARE INT LIMITED-RB-92096-2020

PATIENT

DRUGS (1)
  1. DETTOL FIRST AID ANTISEPTIC [Suspect]
     Active Substance: CHLOROXYLENOL
     Indication: ACNE
     Dosage: UNK
     Route: 061

REACTIONS (3)
  - Scar [Recovered/Resolved]
  - Intentional product misuse [Unknown]
  - Skin exfoliation [Unknown]
